FAERS Safety Report 23610592 (Version 1)
Quarter: 2024Q1

REPORT INFORMATION
  Report Type: Spontaneous
  Country: CN (occurrence: CN)
  Receive Date: 20240308
  Receipt Date: 20240308
  Transmission Date: 20240409
  Serious: Yes (Disabling, Other)
  Sender: FDA-Public Use
  Company Number: CN-GLAXOSMITHKLINE-CN2024APC027165

PATIENT

DRUGS (1)
  1. LAMOTRIGINE [Suspect]
     Active Substance: LAMOTRIGINE
     Indication: Drug therapy
     Dosage: 50 MG, BID
     Route: 048
     Dates: start: 20240123, end: 20240202

REACTIONS (18)
  - Erythema multiforme [Recovering/Resolving]
  - Stevens-Johnson syndrome [Recovering/Resolving]
  - Haematemesis [Recovering/Resolving]
  - Myocarditis [Recovering/Resolving]
  - Dermatitis bullous [Recovering/Resolving]
  - Rash erythematous [Recovering/Resolving]
  - Pruritus [Recovering/Resolving]
  - Rash [Recovering/Resolving]
  - Erythema [Recovering/Resolving]
  - Swelling face [Recovering/Resolving]
  - Ulcer [Recovering/Resolving]
  - Skin weeping [Recovering/Resolving]
  - Ocular hyperaemia [Recovering/Resolving]
  - Eye swelling [Recovering/Resolving]
  - Eye discharge [Recovering/Resolving]
  - Lip erosion [Recovering/Resolving]
  - Condition aggravated [Recovering/Resolving]
  - Sinus tachycardia [Recovering/Resolving]

NARRATIVE: CASE EVENT DATE: 20240203
